FAERS Safety Report 20053178 (Version 1)
Quarter: 2021Q4

REPORT INFORMATION
  Report Type: Spontaneous
  Country: US (occurrence: None)
  Receive Date: 20211109
  Receipt Date: 20211109
  Transmission Date: 20220303
  Serious: No
  Sender: FDA-Public Use
  Company Number: None

PATIENT
  Sex: Male

DRUGS (2)
  1. IBUPROFEN [Suspect]
     Active Substance: IBUPROFEN
  2. PARAFON FORTE [Suspect]
     Active Substance: CHLORZOXAZONE

REACTIONS (2)
  - Abdominal discomfort [None]
  - Vomiting [None]
